FAERS Safety Report 15579821 (Version 1)
Quarter: 2018Q4

REPORT INFORMATION
  Report Type: Spontaneous
  Country: BR (occurrence: BR)
  Receive Date: 20181102
  Receipt Date: 20181102
  Transmission Date: 20190205
  Serious: Yes (Other)
  Sender: FDA-Public Use
  Company Number: BR-GLAXOSMITHKLINE-BR2018GSK199074

PATIENT
  Age: 60 Year
  Sex: Female

DRUGS (3)
  1. ENALAPRIL MALEATE. [Concomitant]
     Active Substance: ENALAPRIL MALEATE
     Indication: PRODUCT USED FOR UNKNOWN INDICATION
     Dosage: 10 MG, UNK
  2. NIQUITIN [Suspect]
     Active Substance: NICOTINE
     Indication: SMOKING CESSATION THERAPY
     Dosage: UNK (4 MG)
     Route: 048
     Dates: start: 20181019, end: 20181020
  3. INDAPAMIDE. [Concomitant]
     Active Substance: INDAPAMIDE
     Indication: PRODUCT USED FOR UNKNOWN INDICATION
     Dosage: 1.5 MG, UNK

REACTIONS (5)
  - Nausea [Recovered/Resolved]
  - Throat tightness [Recovered/Resolved]
  - Oropharyngeal blistering [Recovered/Resolved]
  - Hypersensitivity [Recovered/Resolved]
  - Saliva altered [Recovered/Resolved]

NARRATIVE: CASE EVENT DATE: 20181019
